FAERS Safety Report 20207834 (Version 1)
Quarter: 2021Q4

REPORT INFORMATION
  Report Type: Spontaneous
  Country: US (occurrence: None)
  Receive Date: 20211220
  Receipt Date: 20211220
  Transmission Date: 20220303
  Serious: Yes (Other)
  Sender: FDA-Public Use
  Company Number: None

PATIENT
  Age: 84 Year
  Sex: Female
  Weight: 60.2 kg

DRUGS (15)
  1. ACTEMRA [Suspect]
     Active Substance: TOCILIZUMAB
     Indication: Giant cell arteritis
     Dosage: FREQUENCY : WEEKLY;?
     Route: 058
     Dates: start: 20210709
  2. ACETAMINOPHEN [Concomitant]
  3. AMLODIPINE [Concomitant]
     Active Substance: AMLODIPINE BESYLATE
  4. aspirin [Concomitant]
  5. CeleXA [Concomitant]
  6. EFFIENT [Concomitant]
  7. FERROUS SULFATE [Concomitant]
  8. ISOSORBIDE MN ER [Concomitant]
  9. LOSARTAN [Concomitant]
  10. Metoprolol Succinate ER [Concomitant]
  11. NITROGLYCERIN [Concomitant]
  12. PRAVACHOL [Concomitant]
  13. PriLOSEC delayed release [Concomitant]
  14. VITAMIN B12 [Concomitant]
     Active Substance: CYANOCOBALAMIN
  15. VITAMIN D3 [Concomitant]

REACTIONS (7)
  - Pruritus [None]
  - Alopecia [None]
  - Alopecia [None]
  - Blindness unilateral [None]
  - Visual impairment [None]
  - Vision blurred [None]
  - Intraocular pressure increased [None]

NARRATIVE: CASE EVENT DATE: 20211209
